FAERS Safety Report 5311592-2 (Version None)
Quarter: 2007Q2

REPORT INFORMATION
  Report Type: 
  Country: None (occurrence: None)
  Receive Date: 20070430
  Receipt Date: 20070419
  Transmission Date: 20071010
  Serious: Yes (Hospitalization)
  Sender: FDA-Public Use
  Company Number: FR-ROCHE-493808

PATIENT
  Age: 68 Year
  Sex: Female

DRUGS (1)
  1. LOXEN LP 50 [Suspect]
     Indication: HYPERTENSION
     Route: 048
     Dates: start: 20060515, end: 20070125

REACTIONS (1)
  - ECZEMA [None]
